FAERS Safety Report 9875144 (Version 1)
Quarter: 2014Q1

REPORT INFORMATION
  Report Type: Spontaneous
  Country: US (occurrence: US)
  Receive Date: 20140206
  Receipt Date: 20140206
  Transmission Date: 20141002
  Serious: Yes (Hospitalization, Other)
  Sender: FDA-Public Use
  Company Number: CHPA2014US001930

PATIENT
  Age: 78 Year
  Sex: Male

DRUGS (2)
  1. ACETYLSALICYLIC ACID [Suspect]
     Dosage: 81 MG, UNK
  2. GAS-X [Suspect]
     Dosage: 1 TO 2 DF, UNK

REACTIONS (8)
  - Hypoaesthesia [Unknown]
  - Carpal tunnel syndrome [Unknown]
  - Convulsion [Unknown]
  - Haemorrhage [Unknown]
  - Blood disorder [Unknown]
  - Headache [Unknown]
  - Underdose [Unknown]
  - Expired drug administered [Unknown]
